FAERS Safety Report 9533196 (Version 1)
Quarter: 2013Q3

REPORT INFORMATION
  Report Type: Spontaneous
  Country: US (occurrence: None)
  Receive Date: 20130916
  Receipt Date: 20130916
  Transmission Date: 20140515
  Serious: Yes (Other)
  Sender: FDA-Public Use
  Company Number: 2013P1019144

PATIENT
  Sex: Male

DRUGS (1)
  1. PHENOBARBITAL [Suspect]
     Dosage: 3 WEEKS

REACTIONS (3)
  - Vertigo [None]
  - Convulsion [None]
  - Balance disorder [None]
